FAERS Safety Report 14926454 (Version 1)
Quarter: 2018Q2

REPORT INFORMATION
  Report Type: Spontaneous
  Country: US (occurrence: US)
  Receive Date: 20180523
  Receipt Date: 20180523
  Transmission Date: 20180711
  Serious: Yes (Other)
  Sender: FDA-Public Use
  Company Number: US-ROCHE-2124087

PATIENT
  Age: 43 Year
  Sex: Female

DRUGS (5)
  1. XOLAIR [Suspect]
     Active Substance: OMALIZUMAB
     Route: 058
     Dates: start: 20170814, end: 20180301
  2. XOLAIR [Suspect]
     Active Substance: OMALIZUMAB
     Route: 058
     Dates: start: 20170922, end: 20180301
  3. XOLAIR [Suspect]
     Active Substance: OMALIZUMAB
     Indication: CHRONIC SPONTANEOUS URTICARIA
     Dosage: 4 DOSES: ON MAY, AUG, SEP/2017 AND MAR/2018
     Route: 058
     Dates: start: 20170510, end: 20180301
  4. EXCEDRIN (UNITED STATES) [Concomitant]
  5. XOLAIR [Suspect]
     Active Substance: OMALIZUMAB
     Route: 058
     Dates: start: 20180301

REACTIONS (10)
  - Blood albumin decreased [Recovered/Resolved]
  - Blood alkaline phosphatase increased [Recovered/Resolved]
  - Amylase [Recovered/Resolved]
  - Haemoglobin decreased [Recovered/Resolved]
  - Albumin globulin ratio decreased [Recovered/Resolved]
  - Alanine aminotransferase increased [Recovered/Resolved]
  - Red blood cell count decreased [Recovered/Resolved]
  - Liver function test increased [Recovered/Resolved]
  - Blood magnesium decreased [Recovered/Resolved]
  - Aspartate aminotransferase increased [Recovered/Resolved]

NARRATIVE: CASE EVENT DATE: 20180306
